FAERS Safety Report 4949315-9 (Version None)
Quarter: 2006Q1

REPORT INFORMATION
  Report Type: 
  Country: None (occurrence: None)
  Receive Date: 20060315
  Receipt Date: 20060307
  Transmission Date: 20060701
  Serious: Yes (Hospitalization)
  Sender: FDA-Public Use
  Company Number: 2006BI002418

PATIENT
  Age: 44 Year
  Sex: Male

DRUGS (1)
  1. AVONEX [Suspect]
     Indication: MULTIPLE SCLEROSIS
     Dosage: 30 UG; QW; IM
     Route: 030
     Dates: start: 20050708

REACTIONS (9)
  - BALANCE DISORDER [None]
  - CELLULITIS [None]
  - CONDITION AGGRAVATED [None]
  - DIABETES MELLITUS [None]
  - FALL [None]
  - INFUSION SITE REACTION [None]
  - LIMB INJURY [None]
  - MULTIPLE SCLEROSIS [None]
  - SPINAL CORD DISORDER [None]
